APPROVED DRUG PRODUCT: LOSARTAN POTASSIUM AND HYDROCHLOROTHIAZIDE
Active Ingredient: HYDROCHLOROTHIAZIDE; LOSARTAN POTASSIUM
Strength: 25MG;100MG
Dosage Form/Route: TABLET;ORAL
Application: A204832 | Product #003 | TE Code: AB
Applicant: UNICHEM LABORATORIES LTD
Approved: Jul 21, 2017 | RLD: No | RS: No | Type: RX